FAERS Safety Report 18113539 (Version 5)
Quarter: 2021Q2

REPORT INFORMATION
  Report Type: Spontaneous
  Country: US (occurrence: US)
  Receive Date: 20200805
  Receipt Date: 20210507
  Transmission Date: 20210717
  Serious: Yes (Hospitalization, Other)
  Sender: FDA-Public Use
  Company Number: US-GLAXOSMITHKLINE-US2020AMR148495

PATIENT
  Age: 56 Year
  Sex: Female

DRUGS (7)
  1. FLOLAN [Suspect]
     Active Substance: EPOPROSTENOL SODIUM
     Dosage: 89 DF, CO
     Route: 065
     Dates: start: 20061215
  2. FLOLAN DILUENT PH 12 [Suspect]
     Active Substance: GLYCINE\MANNITOL\SODIUM CHLORIDE
     Dosage: UNK
     Route: 065
  3. FLOLAN DILUENT PH 12 [Suspect]
     Active Substance: GLYCINE\MANNITOL\SODIUM CHLORIDE
     Dosage: UNK
     Route: 065
  4. FLOLAN DILUENT PH 12 [Suspect]
     Active Substance: GLYCINE\MANNITOL\SODIUM CHLORIDE
     Indication: PULMONARY ARTERIAL HYPERTENSION
     Dosage: UNK
     Route: 065
     Dates: start: 20190121
  5. FLOLAN DILUENT PH 12 [Suspect]
     Active Substance: GLYCINE\MANNITOL\SODIUM CHLORIDE
     Dosage: UNK
     Route: 065
  6. FLOLAN [Suspect]
     Active Substance: EPOPROSTENOL SODIUM
     Indication: PULMONARY ARTERIAL HYPERTENSION
     Dosage: 87 DF, CO
     Route: 065
     Dates: start: 20061215
  7. FLOLAN [Suspect]
     Active Substance: EPOPROSTENOL SODIUM
     Indication: PULMONARY ARTERIAL HYPERTENSION
     Dosage: 89 DF, CO, NG/KG/MIN

REACTIONS (12)
  - Infusion site swelling [Unknown]
  - Central venous catheterisation [Unknown]
  - Muscular weakness [Unknown]
  - Infusion site erythema [Unknown]
  - Vascular device infection [Unknown]
  - Catheter site haemorrhage [Unknown]
  - Catheterisation cardiac [Unknown]
  - Catheter site pain [Unknown]
  - Catheter site swelling [Unknown]
  - Infusion site abscess [Recovered/Resolved]
  - Intensive care [Unknown]
  - Pain in extremity [Unknown]

NARRATIVE: CASE EVENT DATE: 202012
